FAERS Safety Report 10676253 (Version 1)
Quarter: 2014Q4

REPORT INFORMATION
  Report Type: Spontaneous
  Country: US (occurrence: US)
  Receive Date: 20141226
  Receipt Date: 20141226
  Transmission Date: 20150529
  Serious: Yes (Hospitalization, Other)
  Sender: FDA-Public Use
  Company Number: US-CIPLA LTD.-2014US02874

PATIENT

DRUGS (6)
  1. VINCRISTINE [Suspect]
     Active Substance: VINCRISTINE
  2. CARBOPLATIN. [Suspect]
     Active Substance: CARBOPLATIN
     Indication: EWING^S SARCOMA METASTATIC
     Dosage: 667 MG/M2/DAY ON DAYS 6, 5 AND 4
  3. IFOSFAMIDE. [Suspect]
     Active Substance: IFOSFAMIDE
  4. CYCLOPHOSPHAMIDE. [Suspect]
     Active Substance: CYCLOPHOSPHAMIDE
  5. ETOPOSIDE. [Suspect]
     Active Substance: ETOPOSIDE
     Indication: EWING^S SARCOMA
     Dosage: 800 MG/M2/DAY ON DAYS 6, 5 AND 4
  6. DOXORUBICIN [Suspect]
     Active Substance: DOXORUBICIN

REACTIONS (6)
  - Pyrexia [Unknown]
  - Chronic kidney disease [Recovering/Resolving]
  - Neutropenia [Unknown]
  - Neuropathy peripheral [Unknown]
  - Oesophageal candidiasis [Unknown]
  - Clostridium difficile colitis [Unknown]
